FAERS Safety Report 8327874-6 (Version None)
Quarter: 2012Q2

REPORT INFORMATION
  Report Type: 
  Country: None (occurrence: None)
  Receive Date: 20120502
  Receipt Date: 20120423
  Transmission Date: 20120825
  Serious: Yes (Other)
  Sender: FDA-Public Use
  Company Number: JP-VERTEX PHARMACEUTICALS INC.-AE-2012-001804

PATIENT
  Age: 74 Year
  Sex: Female

DRUGS (14)
  1. TELAVIC (TELAPREVIR) [Suspect]
     Route: 048
     Dates: start: 20120403
  2. ZOLPIDEM [Concomitant]
     Route: 048
     Dates: start: 20120124
  3. OMEPRAZOLE [Concomitant]
     Route: 048
     Dates: start: 20120126
  4. TELAVIC (TELAPREVIR) [Suspect]
     Route: 048
     Dates: end: 20120402
  5. TELAVIC (TELAPREVIR) [Suspect]
     Indication: HEPATITIS C
     Route: 048
     Dates: start: 20120124, end: 20120131
  6. PEG-INTRON [Concomitant]
     Route: 058
     Dates: start: 20120124, end: 20120131
  7. REBETOL [Concomitant]
     Route: 048
     Dates: start: 20120124, end: 20120131
  8. REBETOL [Concomitant]
     Route: 048
     Dates: start: 20120410
  9. REBETOL [Concomitant]
     Route: 048
     Dates: start: 20120313, end: 20120409
  10. TELAVIC (TELAPREVIR) [Suspect]
     Route: 048
     Dates: start: 20120214
  11. PEG-INTRON [Concomitant]
     Route: 058
  12. BETAMAC [Concomitant]
     Route: 048
     Dates: start: 20120130
  13. CONIEL [Concomitant]
     Route: 048
     Dates: start: 20120124, end: 20120125
  14. GASMOTIN [Concomitant]
     Route: 048
     Dates: start: 20120125

REACTIONS (6)
  - RENAL FAILURE ACUTE [None]
  - DEHYDRATION [None]
  - HYPOTENSION [None]
  - DRUG INTERACTION [None]
  - BLOOD URIC ACID INCREASED [None]
  - ANAEMIA [None]
